FAERS Safety Report 19095784 (Version 1)
Quarter: 2021Q2

REPORT INFORMATION
  Report Type: Spontaneous
  Country: CN (occurrence: CN)
  Receive Date: 20210406
  Receipt Date: 20210406
  Transmission Date: 20210717
  Serious: Yes (Hospitalization)
  Sender: FDA-Public Use
  Company Number: CN-JNJFOC-20210356368

PATIENT
  Age: 60 Year
  Sex: Male
  Weight: 73.3 kg

DRUGS (1)
  1. TYLENOL ER 650MG TABLET [Suspect]
     Active Substance: ACETAMINOPHEN
     Indication: PYREXIA
     Route: 048
     Dates: start: 20210307, end: 20210308

REACTIONS (1)
  - Hepatic enzyme increased [Recovered/Resolved with Sequelae]

NARRATIVE: CASE EVENT DATE: 20210308
